FAERS Safety Report 4517118-5 (Version None)
Quarter: 2004Q4

REPORT INFORMATION
  Report Type: 
  Country: None (occurrence: None)
  Receive Date: 20041007
  Receipt Date: 20040726
  Transmission Date: 20050328
  Serious: Yes (Hospitalization)
  Sender: FDA-Public Use
  Company Number: 233815K04USA

PATIENT

DRUGS (1)
  1. REBIF [Suspect]
     Indication: MULTIPLE SCLEROSIS
     Dosage: 22 MCG
     Dates: start: 20040709

REACTIONS (5)
  - DYSPHAGIA [None]
  - FATIGUE [None]
  - MULTIPLE SCLEROSIS [None]
  - NAUSEA [None]
  - SPEECH DISORDER [None]
